FAERS Safety Report 12939446 (Version 1)
Quarter: 2016Q4

REPORT INFORMATION
  Report Type: Spontaneous
  Country: US (occurrence: US)
  Receive Date: 20161114
  Receipt Date: 20161114
  Transmission Date: 20170207
  Serious: Yes (Disabling)
  Sender: FDA-Public Use
  Company Number: None

PATIENT
  Age: 26 Year
  Sex: Female
  Weight: 57.6 kg

DRUGS (5)
  1. ISOTRETINOIN [Suspect]
     Active Substance: ISOTRETINOIN
     Indication: ACNE CYSTIC
     Dosage: ?          QUANTITY:2 TABLET(S);?
     Route: 048
     Dates: start: 20160515, end: 20161017
  2. ADDERALL [Concomitant]
     Active Substance: AMPHETAMINE ASPARTATE\AMPHETAMINE SULFATE\DEXTROAMPHETAMINE SACCHARATE\DEXTROAMPHETAMINE SULFATE
  3. JUNEL [Concomitant]
     Active Substance: ETHINYL ESTRADIOL\NORETHINDRONE ACETATE
  4. PROZAC [Concomitant]
     Active Substance: FLUOXETINE HYDROCHLORIDE
  5. BIOTIN [Concomitant]
     Active Substance: BIOTIN

REACTIONS (6)
  - Aggression [None]
  - Insomnia [None]
  - Suicidal ideation [None]
  - Anxiety [None]
  - Mood swings [None]
  - Depression [None]

NARRATIVE: CASE EVENT DATE: 20160801
